FAERS Safety Report 26187435 (Version 1)
Quarter: 2025Q4

REPORT INFORMATION
  Report Type: Spontaneous
  Country: CH (occurrence: CH)
  Receive Date: 20251222
  Receipt Date: 20251222
  Transmission Date: 20260117
  Serious: Yes (Other)
  Sender: PFIZER
  Company Number: CH-MLMSERVICE-20251204-PI731452-00306-3

PATIENT
  Age: 37 Year
  Sex: Female

DRUGS (8)
  1. METHYLPREDNISOLONE SODIUM SUCCINATE [Suspect]
     Active Substance: METHYLPREDNISOLONE SODIUM SUCCINATE
     Indication: Placental disorder
     Dosage: 1 MG/KG, (INTRAVENOUS BOLUS AT EACH INFUSION; INTRODUCED 12 WEEKS PRIOR TO A NEW CONCEPTION ATTEMPT)
     Route: 040
  2. HYDROXYCHLOROQUINE [Suspect]
     Active Substance: HYDROXYCHLOROQUINE
     Indication: Placental disorder
     Dosage: 5 MG/KG, 1X/DAY (INTRODUCED 12 WEEKS PRIOR TO A NEW CONCEPTION ATTEMPT)
     Route: 048
  3. PREDNISOLONE [Suspect]
     Active Substance: PREDNISOLONE
     Indication: Placental disorder
     Dosage: 10 MG, 1X/DAY
     Route: 048
  4. AZATHIOPRINE [Suspect]
     Active Substance: AZATHIOPRINE
     Indication: Placental disorder
     Dosage: 1 MG/KG, 1X/DAY
     Route: 048
  5. TACROLIMUS [Suspect]
     Active Substance: TACROLIMUS
     Indication: Placental disorder
     Dosage: UNK, 2X/DAY (FOR TROUGH LEVELS 6-8 NG/ML; INTRODUCED 12 WEEKS PRIOR TO A NEW CONCEPTION ATTEMPT)
     Route: 048
  6. ASPIRIN [Suspect]
     Active Substance: ASPIRIN
     Indication: Placental disorder
     Dosage: 100 MG, 1X/DAY (LOW-DOSE; INTRODUCED 12 WEEKS PRIOR TO A NEW CONCEPTION ATTEMPT)
     Route: 048
  7. HUMAN IMMUNOGLOBULIN G [Suspect]
     Active Substance: HUMAN IMMUNOGLOBULIN G
     Dosage: 2 G/KG EVERY 4-WEEKS
     Route: 042
  8. HUMAN IMMUNOGLOBULIN G [Suspect]
     Active Substance: HUMAN IMMUNOGLOBULIN G
     Dosage: UNK, WEEKLY

REACTIONS (3)
  - Gestational diabetes [Unknown]
  - Maternal exposure during pregnancy [Unknown]
  - Off label use [Unknown]
